FAERS Safety Report 15364781 (Version 1)
Quarter: 2018Q3

REPORT INFORMATION
  Report Type: Spontaneous
  Country: JP (occurrence: JP)
  Receive Date: 20180910
  Receipt Date: 20180910
  Transmission Date: 20181010
  Serious: Yes (Life-Threatening)
  Sender: FDA-Public Use
  Company Number: JP-BAXTER-2018BAX021489

PATIENT
  Age: 77 Year
  Sex: Female
  Weight: 57 kg

DRUGS (12)
  1. SUPRANE [Suspect]
     Active Substance: DESFLURANE
     Indication: GENERAL ANAESTHESIA
     Route: 055
     Dates: start: 20171124, end: 20171124
  2. FENTANYL. [Suspect]
     Active Substance: FENTANYL
     Indication: GENERAL ANAESTHESIA
     Route: 042
     Dates: start: 20171124, end: 20171124
  3. DICLOFENAC [Suspect]
     Active Substance: DICLOFENAC
     Indication: ANALGESIC THERAPY
     Route: 054
     Dates: start: 20171124, end: 20171124
  4. VESICARE [Suspect]
     Active Substance: SOLIFENACIN SUCCINATE
     Indication: DYSURIA
     Route: 048
  5. PROPOFOL. [Suspect]
     Active Substance: PROPOFOL
     Indication: GENERAL ANAESTHESIA
     Route: 042
     Dates: start: 20171124, end: 20171124
  6. NICARDIPINE [Suspect]
     Active Substance: NICARDIPINE
     Indication: PROCEDURAL HYPERTENSION
     Route: 042
     Dates: start: 20171124, end: 20171124
  7. PITAVASTATIN CA [Suspect]
     Active Substance: PITAVASTATIN CALCIUM
     Indication: HYPERLIPIDAEMIA
     Dosage: 2 UNIT NOT REPORTED
     Route: 048
  8. EPHEDRINE. [Suspect]
     Active Substance: EPHEDRINE
     Indication: PROCEDURAL HYPOTENSION
     Route: 042
     Dates: start: 20171124, end: 20171124
  9. MAGMITT [Suspect]
     Active Substance: MAGNESIUM OXIDE
     Indication: CONSTIPATION
     Route: 048
  10. REMIFENTANIL [Suspect]
     Active Substance: REMIFENTANIL
     Indication: GENERAL ANAESTHESIA
     Route: 042
     Dates: start: 20171124, end: 20171124
  11. ROCURONIUM [Suspect]
     Active Substance: ROCURONIUM BROMIDE
     Indication: GENERAL ANAESTHESIA
     Route: 042
     Dates: start: 20171124, end: 20171124
  12. PHENYLEPHRINE [Suspect]
     Active Substance: PHENYLEPHRINE\PHENYLEPHRINE HYDROCHLORIDE
     Indication: PROCEDURAL HYPOTENSION
     Route: 042
     Dates: start: 20171124, end: 20171124

REACTIONS (1)
  - Pulmonary embolism [Recovering/Resolving]

NARRATIVE: CASE EVENT DATE: 20171126
